FAERS Safety Report 4394366-9 (Version None)
Quarter: 2004Q3

REPORT INFORMATION
  Report Type: 
  Country: None (occurrence: None)
  Receive Date: 20040706
  Receipt Date: 20040623
  Transmission Date: 20050211
  Serious: No
  Sender: FDA-Public Use
  Company Number: 2004UW01083

PATIENT
  Age: 9 Year
  Weight: 36.7414 kg

DRUGS (3)
  1. PULMICORT [Suspect]
     Dosage: 200 UG BID IH
     Route: 055
     Dates: start: 20030801, end: 20040101
  2. SINGULAIR [Concomitant]
  3. ALBUTEROL [Concomitant]

REACTIONS (2)
  - LENTICULAR OPACITIES [None]
  - VISUAL ACUITY REDUCED [None]
